FAERS Safety Report 11573308 (Version 1)
Quarter: 2015Q3

REPORT INFORMATION
  Report Type: Spontaneous
  Country: US (occurrence: US)
  Receive Date: 20150916
  Receipt Date: 20150916
  Transmission Date: 20151125
  Serious: No
  Sender: FDA-Public Use
  Company Number: US-ELI_LILLY_AND_COMPANY-US200910007996

PATIENT
  Sex: Female

DRUGS (2)
  1. DARVOCET [Concomitant]
     Active Substance: ACETAMINOPHEN\PROPOXYPHENE HYDROCHLORIDE
     Indication: PAIN
  2. FORTEO [Suspect]
     Active Substance: TERIPARATIDE
     Dates: start: 20090919

REACTIONS (15)
  - Cardiovascular disorder [Not Recovered/Not Resolved]
  - Breast swelling [Not Recovered/Not Resolved]
  - Gait disturbance [Not Recovered/Not Resolved]
  - Bowel movement irregularity [Unknown]
  - Diverticulitis [Unknown]
  - Peripheral swelling [Not Recovered/Not Resolved]
  - Constipation [Unknown]
  - Abdominal distension [Not Recovered/Not Resolved]
  - Arthropathy [Not Recovered/Not Resolved]
  - Exostosis [Not Recovered/Not Resolved]
  - Fatigue [Not Recovered/Not Resolved]
  - Swelling [Unknown]
  - Back pain [Not Recovered/Not Resolved]
  - Renal disorder [Not Recovered/Not Resolved]
  - Feeling abnormal [Unknown]

NARRATIVE: CASE EVENT DATE: 2009
